FAERS Safety Report 21071466 (Version 1)
Quarter: 2022Q3

REPORT INFORMATION
  Report Type: Spontaneous
  Country: ES (occurrence: ES)
  Receive Date: 20220712
  Receipt Date: 20220712
  Transmission Date: 20221027
  Serious: Yes (Death, Hospitalization)
  Sender: FDA-Public Use
  Company Number: None

PATIENT
  Age: 74 Year
  Sex: Female

DRUGS (5)
  1. ACETAMINOPHEN [Suspect]
     Active Substance: ACETAMINOPHEN
     Indication: Influenza like illness
     Dosage: 1 G, Q8H
     Route: 048
     Dates: start: 20220429, end: 20220519
  2. LORATADINE [Suspect]
     Active Substance: LORATADINE
     Indication: Conjunctivitis allergic
     Dosage: 20 MG, QD
     Route: 048
     Dates: start: 20220505, end: 20220518
  3. PEUMUS BOLDUS LEAF [Suspect]
     Active Substance: PEUMUS BOLDUS LEAF
     Indication: Product used for unknown indication
     Dosage: UNK
     Route: 048
     Dates: start: 202203, end: 20220419
  4. ASPIRIN [Suspect]
     Active Substance: ASPIRIN
     Indication: Influenza like illness
     Dosage: 500 MG, QD
     Route: 048
     Dates: start: 20220329, end: 20220419
  5. HYALURONATE SODIUM [Concomitant]
     Active Substance: HYALURONATE SODIUM
     Indication: Osteoarthropathy
     Dosage: UNK (SOLUCION INYECTABLE, 1 JERINGA PRECARGADA DE 2 ML)
     Route: 014
     Dates: start: 20220408, end: 20220408

REACTIONS (3)
  - Hepatic cytolysis [Fatal]
  - Hyperbilirubinaemia [Fatal]
  - Coagulopathy [Fatal]

NARRATIVE: CASE EVENT DATE: 20220506
